FAERS Safety Report 4976628-7 (Version None)
Quarter: 2006Q2

REPORT INFORMATION
  Report Type: 
  Country: None (occurrence: None)
  Receive Date: 20060419
  Receipt Date: 20051024
  Transmission Date: 20061013
  Serious: Yes (Hospitalization)
  Sender: FDA-Public Use
  Company Number: US-MERCK-0510USA08804

PATIENT
  Age: 75 Year
  Sex: Female
  Weight: 64 kg

DRUGS (10)
  1. VIOXX [Suspect]
     Indication: PAIN
     Route: 048
     Dates: start: 20030501, end: 20040727
  2. VIOXX [Suspect]
     Indication: ARTHRITIS
     Route: 048
     Dates: start: 20030501, end: 20040727
  3. ZOCOR [Concomitant]
     Route: 065
  4. ZEBETA [Concomitant]
     Route: 065
  5. DIGITEK [Concomitant]
     Route: 065
  6. ANSAID [Concomitant]
     Route: 065
  7. PROZAC [Concomitant]
     Route: 065
  8. LEVOXYL [Concomitant]
     Route: 065
  9. LASIX [Concomitant]
     Route: 065
  10. DEMEROL [Concomitant]
     Route: 065

REACTIONS (17)
  - ACCELERATED HYPERTENSION [None]
  - BRONCHIECTASIS [None]
  - CARDIAC VALVE DISEASE [None]
  - CARDIOMEGALY [None]
  - CEREBRAL ISCHAEMIA [None]
  - CHRONIC OBSTRUCTIVE PULMONARY DISEASE [None]
  - CORONARY ARTERY DISEASE [None]
  - DEHYDRATION [None]
  - DIVERTICULITIS [None]
  - GASTROOESOPHAGEAL REFLUX DISEASE [None]
  - HAEMATOMA [None]
  - HAEMORRHAGE [None]
  - HYPERTENSION [None]
  - HYSTERECTOMY [None]
  - MIGRAINE [None]
  - NAUSEA [None]
  - THALAMIC INFARCTION [None]
